FAERS Safety Report 6337515-5 (Version None)
Quarter: 2009Q3

REPORT INFORMATION
  Report Type: 
  Country: None (occurrence: None)
  Receive Date: 20090902
  Receipt Date: 20090824
  Transmission Date: 20100115
  Serious: Yes (Other)
  Sender: FDA-Public Use
  Company Number: PHHY2009BR36238

PATIENT
  Age: 18 Year
  Sex: Male

DRUGS (1)
  1. TEGRETOL [Suspect]
     Indication: EPILEPSY
     Dosage: 200 MG, UNK

REACTIONS (5)
  - ACNE [None]
  - DEPRESSED MOOD [None]
  - PURULENT DISCHARGE [None]
  - RASH [None]
  - SKIN NECROSIS [None]
